FAERS Safety Report 18387335 (Version 1)
Quarter: 2020Q4

REPORT INFORMATION
  Report Type: Spontaneous
  Country: ES (occurrence: ES)
  Receive Date: 20201015
  Receipt Date: 20201015
  Transmission Date: 20210114
  Serious: Yes (Other)
  Sender: FDA-Public Use
  Company Number: NVSC2020ES124792

PATIENT
  Age: 6 Year
  Sex: Male

DRUGS (4)
  1. METHYLPHENIDATE HYDROCHLORIDE. [Suspect]
     Active Substance: METHYLPHENIDATE HYDROCHLORIDE
     Dosage: 5 MG, Q24H
     Route: 065
     Dates: start: 201703, end: 201707
  2. METHYLPHENIDATE HYDROCHLORIDE. [Suspect]
     Active Substance: METHYLPHENIDATE HYDROCHLORIDE
     Indication: ATTENTION DEFICIT HYPERACTIVITY DISORDER
     Dosage: UNK
     Route: 065
  3. LISDEXAMFETAMINE DIMESYLATE [Suspect]
     Active Substance: LISDEXAMFETAMINE DIMESYLATE
     Indication: ATTENTION DEFICIT HYPERACTIVITY DISORDER
     Dosage: UNK
     Route: 065
  4. METHYLPHENIDATE HYDROCHLORIDE. [Suspect]
     Active Substance: METHYLPHENIDATE HYDROCHLORIDE
     Dosage: INTERMEDIATE-ACTING (SE COMENZO CON 10 MG, SE SUBIO A 20 Y SE BAJO DE NUEVO A 10, DESPUES SE RETIRO)
     Route: 065
     Dates: start: 20161216, end: 20170717

REACTIONS (1)
  - Trichotillomania [Recovered/Resolved]

NARRATIVE: CASE EVENT DATE: 201703
